FAERS Safety Report 9434646 (Version 2)
Quarter: 2013Q3

REPORT INFORMATION
  Report Type: Spontaneous
  Country: US (occurrence: US)
  Receive Date: 20130801
  Receipt Date: 20130926
  Transmission Date: 20140515
  Serious: Yes (Hospitalization)
  Sender: FDA-Public Use
  Company Number: US-BAYER-2013-092294

PATIENT
  Age: 17 Year
  Sex: Female
  Weight: 54.88 kg

DRUGS (5)
  1. OCELLA [Suspect]
     Dosage: UNK
     Route: 048
     Dates: start: 201007, end: 201009
  2. OCELLA [Suspect]
     Dosage: UNK
     Route: 048
     Dates: start: 201105, end: 20110803
  3. YASMIN [Suspect]
  4. XOPENEX [Concomitant]
  5. IRON SULFATE [Concomitant]

REACTIONS (8)
  - Pulmonary embolism [None]
  - Pain [None]
  - Injury [None]
  - General physical health deterioration [None]
  - Emotional distress [None]
  - Pain [None]
  - Anxiety [None]
  - Anhedonia [None]
